FAERS Safety Report 5272946-6 (Version None)
Quarter: 2007Q1

REPORT INFORMATION
  Report Type: 
  Country: None (occurrence: None)
  Receive Date: 20070322
  Receipt Date: 20070312
  Transmission Date: 20070707
  Serious: Yes (Hospitalization)
  Sender: FDA-Public Use
  Company Number: 2007AP01636

PATIENT
  Age: 79 Year
  Sex: Male

DRUGS (2)
  1. PULMICORT [Suspect]
     Route: 055
  2. EVAMYL [Concomitant]
     Indication: INSOMNIA

REACTIONS (1)
  - EXTRASYSTOLES [None]
